FAERS Safety Report 23549759 (Version 1)
Quarter: 2024Q1

REPORT INFORMATION
  Report Type: Spontaneous
  Country: US (occurrence: US)
  Receive Date: 20240221
  Receipt Date: 20240221
  Transmission Date: 20240410
  Serious: No
  Sender: FDA-Public Use
  Company Number: US-DAIICHI SANKYO, INC.-DSU-2024-107861AA

PATIENT
  Sex: Male

DRUGS (1)
  1. ENHERTU [Suspect]
     Active Substance: FAM-TRASTUZUMAB DERUXTECAN-NXKI
     Indication: Metastatic lymphoma
     Dosage: 368.8 MG
     Route: 065

REACTIONS (2)
  - Cataract [Unknown]
  - Off label use [Not Recovered/Not Resolved]
